FAERS Safety Report 23057686 (Version 3)
Quarter: 2023Q4

REPORT INFORMATION
  Report Type: Report from Study
  Country: US (occurrence: US)
  Receive Date: 20231012
  Receipt Date: 20231204
  Transmission Date: 20240109
  Serious: Yes (Death, Hospitalization)
  Sender: FDA-Public Use
  Company Number: US-TAIHOP-2023-005217

PATIENT
  Age: 57 Year
  Sex: Female

DRUGS (2)
  1. LYTGOBI [Suspect]
     Active Substance: FUTIBATINIB
     Indication: Bile duct cancer
     Route: 048
     Dates: start: 20230520
  2. LYTGOBI [Suspect]
     Active Substance: FUTIBATINIB
     Route: 048

REACTIONS (5)
  - Death [Fatal]
  - Bacteraemia [Unknown]
  - Nausea [Unknown]
  - Dehydration [Unknown]
  - Gastric infection [Unknown]

NARRATIVE: CASE EVENT DATE: 20230619
